FAERS Safety Report 13923507 (Version 1)
Quarter: 2017Q3

REPORT INFORMATION
  Report Type: Spontaneous
  Country: US (occurrence: US)
  Receive Date: 20170830
  Receipt Date: 20170830
  Transmission Date: 20171127
  Serious: No
  Sender: FDA-Public Use
  Company Number: None

PATIENT
  Age: 30 Year
  Sex: Female
  Weight: 90 kg

DRUGS (1)
  1. BOTOX [Suspect]
     Active Substance: ONABOTULINUMTOXINA
     Indication: SKIN COSMETIC PROCEDURE
     Dosage: OTHER ROUTE:INJECTION FOREHEAD?
     Dates: start: 20170714, end: 20170714

REACTIONS (2)
  - Treatment failure [None]
  - Suspected counterfeit product [None]

NARRATIVE: CASE EVENT DATE: 20170714
